FAERS Safety Report 5265507-6 (Version None)
Quarter: 2007Q1

REPORT INFORMATION
  Report Type: 
  Country: None (occurrence: None)
  Receive Date: 20070314
  Receipt Date: 20070302
  Transmission Date: 20070707
  Serious: Yes (Other)
  Sender: FDA-Public Use
  Company Number: IE-PFIZER INC-2007010169

PATIENT
  Age: 85 Year
  Sex: Female

DRUGS (3)
  1. LYRICA [Suspect]
     Indication: NEURALGIA
     Route: 048
     Dates: start: 20061006, end: 20061006
  2. BENZODIAZEPINE DERIVATIVES [Concomitant]
  3. OPIOIDS [Concomitant]

REACTIONS (8)
  - ABDOMINAL PAIN [None]
  - DRUG TOXICITY [None]
  - FEELING ABNORMAL [None]
  - FEELING DRUNK [None]
  - GAIT DISTURBANCE [None]
  - HALLUCINATION [None]
  - MALAISE [None]
  - NAUSEA [None]
